FAERS Safety Report 12853732 (Version 1)
Quarter: 2016Q4

REPORT INFORMATION
  Report Type: Spontaneous
  Country: US (occurrence: US)
  Receive Date: 20161017
  Receipt Date: 20161017
  Transmission Date: 20170207
  Serious: Yes (Other)
  Sender: FDA-Public Use
  Company Number: US-NOVEL LABORATORIES, INC-2016-04626

PATIENT
  Sex: Female

DRUGS (2)
  1. MY WAY [Suspect]
     Active Substance: LEVONORGESTREL
     Indication: CONTRACEPTION
     Dosage: IN THE MORNING
     Route: 048
     Dates: start: 2014, end: 2014
  2. MY WAY [Suspect]
     Active Substance: LEVONORGESTREL
     Route: 048
     Dates: start: 20160808, end: 20160808

REACTIONS (1)
  - Pregnancy on oral contraceptive [Unknown]

NARRATIVE: CASE EVENT DATE: 2014
